FAERS Safety Report 9775598 (Version 1)
Quarter: 2013Q4

REPORT INFORMATION
  Report Type: Report from Study
  Country: US (occurrence: US)
  Receive Date: 20131220
  Receipt Date: 20131220
  Transmission Date: 20140711
  Serious: Yes (Other)
  Sender: FDA-Public Use
  Company Number: US-JNJFOC-20131209773

PATIENT
  Sex: Female
  Weight: 88.45 kg

DRUGS (4)
  1. REMICADE [Suspect]
     Indication: RHEUMATOID ARTHRITIS
     Dosage: RESTARTED
     Route: 042
  2. REMICADE [Suspect]
     Indication: RHEUMATOID ARTHRITIS
     Dosage: RESTARTED
     Route: 042
  3. REMICADE [Suspect]
     Indication: RHEUMATOID ARTHRITIS
     Route: 042
     Dates: start: 2008
  4. METHOTREXATE [Concomitant]
     Route: 065

REACTIONS (5)
  - Accident [Recovered/Resolved]
  - Ligament rupture [Unknown]
  - Meniscus injury [Unknown]
  - Hernia [Recovered/Resolved]
  - Hysterectomy [Unknown]
